FAERS Safety Report 8146918-8 (Version None)
Quarter: 2012Q1

REPORT INFORMATION
  Report Type: 
  Country: None (occurrence: None)
  Receive Date: 20120217
  Receipt Date: 20120208
  Transmission Date: 20120608
  Serious: Yes (Hospitalization)
  Sender: FDA-Public Use
  Company Number: JP-ASTRAZENECA-2012SE09869

PATIENT
  Sex: Female

DRUGS (1)
  1. SEROQUEL [Suspect]
     Dosage: A TOTAL OF 25 MG WAS GIVEN THREE TIMES A WEEK BUT NOT EVERY WEEK
     Route: 048

REACTIONS (1)
  - ILEUS [None]
